FAERS Safety Report 18601378 (Version 1)
Quarter: 2020Q4

REPORT INFORMATION
  Report Type: Spontaneous
  Country: GR (occurrence: GR)
  Receive Date: 20201210
  Receipt Date: 20201210
  Transmission Date: 20210114
  Serious: Yes (Hospitalization, Other)
  Sender: FDA-Public Use
  Company Number: GR-BAYER-2020-268629

PATIENT
  Age: 10 Month
  Sex: Female

DRUGS (4)
  1. ISONIAZIDE [Concomitant]
     Active Substance: ISONIAZID
  2. AVELOX [Suspect]
     Active Substance: MOXIFLOXACIN HYDROCHLORIDE
  3. RIFAMPICIN [Concomitant]
     Active Substance: RIFAMPIN
  4. PYRAZINAMIDE. [Concomitant]
     Active Substance: PYRAZINAMIDE

REACTIONS (3)
  - Seizure [Recovering/Resolving]
  - Off label use [None]
  - Depressed level of consciousness [Recovering/Resolving]
